FAERS Safety Report 8629756 (Version 4)
Quarter: 2013Q1

REPORT INFORMATION
  Report Type: Spontaneous
  Country: US (occurrence: None)
  Receive Date: 20120606
  Receipt Date: 20121102
  Transmission Date: 20140127
  Serious: Yes (Hospitalization)
  Sender: FDA-Public Use
  Company Number: DSA_57574_2012

PATIENT
  Sex: Female

DRUGS (1)
  1. XENAZINE [Suspect]
     Indication: HUNTINGTON^S DISEASE
     Dosage: (2 TABLETS IN THE AM AND 1.5 TABLETS IN THE PM ORAL)
     Route: 048
     Dates: start: 20120403, end: 2012

REACTIONS (10)
  - Asthma [None]
  - Constipation [None]
  - Nausea [None]
  - Vomiting [None]
  - Abdominal pain [None]
  - Rectal haemorrhage [None]
  - Haematemesis [None]
  - Muscle spasms [None]
  - Pregnancy [None]
  - Exposure during pregnancy [None]
